FAERS Safety Report 11510102 (Version 1)
Quarter: 2015Q3

REPORT INFORMATION
  Report Type: Spontaneous
  Country: US (occurrence: US)
  Receive Date: 20150915
  Receipt Date: 20150915
  Transmission Date: 20151125
  Serious: No
  Sender: FDA-Public Use
  Company Number: US-JNJFOC-20150606648

PATIENT
  Age: 94 Year
  Sex: Male
  Weight: 68.04 kg

DRUGS (7)
  1. VITAMIN [Concomitant]
     Active Substance: VITAMINS
     Indication: NUTRITIONAL SUPPLEMENTATION
     Route: 065
  2. ASPIRIN. [Concomitant]
     Active Substance: ASPIRIN
     Indication: CARDIAC DISORDER
     Route: 065
  3. TYLENOL EXTRA STRENGTH [Suspect]
     Active Substance: ACETAMINOPHEN
     Route: 048
  4. BETA-BLOCKER (NAME UNSPECIFIED) [Concomitant]
     Active Substance: UNSPECIFIED INGREDIENT
     Indication: CARDIAC DISORDER
     Dosage: 1/2 PILL
     Route: 065
  5. MULTIPLE VITAMINS [Concomitant]
     Active Substance: VITAMINS
     Indication: NUTRITIONAL SUPPLEMENTATION
     Dosage: 1 PACK PER DAY
     Route: 065
  6. TYLENOL EXTRA STRENGTH [Suspect]
     Active Substance: ACETAMINOPHEN
     Indication: ARTHRALGIA
     Route: 048
     Dates: start: 20150606, end: 20150607
  7. ADVIL [Concomitant]
     Active Substance: IBUPROFEN
     Indication: ARTHRALGIA
     Route: 065

REACTIONS (3)
  - Off label use [Unknown]
  - Product quality issue [Unknown]
  - Rash [Not Recovered/Not Resolved]
